FAERS Safety Report 9468166 (Version 1)
Quarter: 2013Q3

REPORT INFORMATION
  Report Type: Spontaneous
  Country: US (occurrence: US)
  Receive Date: 20130821
  Receipt Date: 20130821
  Transmission Date: 20140515
  Serious: No
  Sender: FDA-Public Use
  Company Number: US-BRACCO-008928

PATIENT
  Sex: 0

DRUGS (2)
  1. KINEVAC [Suspect]
     Indication: PRODUCT USED FOR UNKNOWN INDICATION
  2. KINEVAC [Suspect]
     Indication: DIAGNOSTIC PROCEDURE

REACTIONS (1)
  - Hepatobiliary scan abnormal [Unknown]
